FAERS Safety Report 7573580-5 (Version None)
Quarter: 2011Q2

REPORT INFORMATION
  Report Type: 
  Country: None (occurrence: None)
  Receive Date: 20110621
  Receipt Date: 20110608
  Transmission Date: 20111010
  Serious: Yes (Other)
  Sender: FDA-Public Use
  Company Number: 2011-1589

PATIENT
  Age: 41 Year
  Sex: Female
  Weight: 49.8 kg

DRUGS (1)
  1. DYSPORT [Suspect]
     Indication: SKIN WRINKLING
     Dosage: 30 UNITS (30 UNITS,SINGLE CYCLE), INTRAMUSCULAR
     Route: 030
     Dates: start: 20110512, end: 20110512

REACTIONS (12)
  - HYPERSENSITIVITY [None]
  - MUSCLE SPASMS [None]
  - NECK PAIN [None]
  - SWELLING FACE [None]
  - VISION BLURRED [None]
  - ANXIETY [None]
  - DYSPNOEA [None]
  - HYPOAESTHESIA [None]
  - HYPOAESTHESIA FACIAL [None]
  - EYE SWELLING [None]
  - BOTULISM [None]
  - FEELING ABNORMAL [None]
